FAERS Safety Report 9163141 (Version 1)
Quarter: 2013Q1

REPORT INFORMATION
  Report Type: Spontaneous
  Country: US (occurrence: US)
  Receive Date: 20130314
  Receipt Date: 20130314
  Transmission Date: 20140127
  Serious: No
  Sender: FDA-Public Use
  Company Number: US-009507513-1303USA002473

PATIENT
  Age: 31 Year
  Sex: Female

DRUGS (3)
  1. VICTRELIS [Suspect]
     Indication: HEPATITIS C
     Dosage: 800 MG, 3 TIMES A DAY
     Route: 048
  2. PEGINTRON [Suspect]
     Dosage: 150 MICROGRAM, WEEKLY
     Route: 058
  3. RIBASPHERE [Suspect]

REACTIONS (3)
  - Alopecia [Not Recovered/Not Resolved]
  - Dry skin [Not Recovered/Not Resolved]
  - Rash [Not Recovered/Not Resolved]
